FAERS Safety Report 10146596 (Version 2)
Quarter: 2014Q2

REPORT INFORMATION
  Report Type: Report from Study
  Country: IT (occurrence: None)
  Receive Date: 20140429
  Receipt Date: 20140523
  Transmission Date: 20141212
  Serious: Yes (Other)
  Sender: FDA-Public Use
  Company Number: KAD201404-000441

PATIENT
  Age: 50 Year
  Sex: Male

DRUGS (4)
  1. RIBAVIRIN [Suspect]
     Indication: CHRONIC HEPATITIS C
     Route: 048
     Dates: start: 20131205, end: 20140401
  2. BMS 914143 [Suspect]
     Indication: CHRONIC HEPATITIS C
     Route: 058
     Dates: start: 20131205, end: 20140401
  3. SUTIVA (EFAVIRENZ) [Concomitant]
  4. DACLATASVIR [Suspect]
     Indication: CHRONIC HEPATITIS C
     Route: 048
     Dates: start: 20131205, end: 20140225

REACTIONS (4)
  - Jaundice [None]
  - Hyperbilirubinaemia [None]
  - Alanine aminotransferase increased [None]
  - Aspartate aminotransferase increased [None]
